FAERS Safety Report 21550943 (Version 9)
Quarter: 2023Q2

REPORT INFORMATION
  Report Type: Report from Study
  Country: US (occurrence: US)
  Receive Date: 20221103
  Receipt Date: 20230613
  Transmission Date: 20230722
  Serious: Yes (Other)
  Sender: FDA-Public Use
  Company Number: US-XERIS PHARMACEUTICALS-2022XER00375

PATIENT
  Sex: Female
  Weight: 104.31 kg

DRUGS (9)
  1. RECORLEV [Suspect]
     Active Substance: LEVOKETOCONAZOLE
     Indication: Cushing^s syndrome
     Dosage: ONE TABLET (150 MG), 2X/DAY
     Route: 048
     Dates: start: 202210
  2. RECORLEV [Suspect]
     Active Substance: LEVOKETOCONAZOLE
     Dosage: 450 MG, 2X/DAY
     Route: 048
     Dates: start: 202302
  3. RECORLEV [Suspect]
     Active Substance: LEVOKETOCONAZOLE
     Dosage: 2 TABLETS (300 MG), 2X/DAY
     Route: 048
     Dates: start: 202304, end: 20230411
  4. RECORLEV [Suspect]
     Active Substance: LEVOKETOCONAZOLE
     Dosage: 2 TABLETS (300 MG), 2X/DAY
     Route: 048
     Dates: start: 20230518
  5. DULOXETINE [Concomitant]
     Active Substance: DULOXETINE
  6. METOPROLOL [Concomitant]
     Active Substance: METOPROLOL
  7. VERAPAMIL [Concomitant]
     Active Substance: VERAPAMIL HYDROCHLORIDE
  8. VITAMIN D3 [Concomitant]
     Active Substance: CHOLECALCIFEROL
  9. VITAMIN C [Concomitant]
     Active Substance: ASCORBIC ACID

REACTIONS (23)
  - Nephrolithiasis [Recovered/Resolved]
  - Nausea [Recovering/Resolving]
  - Liver disorder [Unknown]
  - Fatigue [Unknown]
  - Feeling hot [Unknown]
  - Acne [Unknown]
  - Pain [Unknown]
  - Oligomenorrhoea [Unknown]
  - Ingrowing nail [Recovering/Resolving]
  - Menstruation irregular [Not Recovered/Not Resolved]
  - Dyspnoea [Unknown]
  - Lip dry [Unknown]
  - Temperature intolerance [Not Recovered/Not Resolved]
  - Hyperhidrosis [Recovering/Resolving]
  - Crying [Recovering/Resolving]
  - Headache [Not Recovered/Not Resolved]
  - Flushing [Unknown]
  - Heart rate decreased [Recovered/Resolved]
  - Depression [Recovering/Resolving]
  - Dry skin [Unknown]
  - Irritability [Recovering/Resolving]
  - Depressed mood [Recovering/Resolving]
  - Heart rate increased [Recovering/Resolving]

NARRATIVE: CASE EVENT DATE: 20220101
